FAERS Safety Report 17494155 (Version 1)
Quarter: 2020Q1

REPORT INFORMATION
  Report Type: Spontaneous
  Country: CN (occurrence: CN)
  Receive Date: 20200304
  Receipt Date: 20200304
  Transmission Date: 20200409
  Serious: Yes (Life-Threatening, Hospitalization)
  Sender: FDA-Public Use
  Company Number: CN-BAXTER-2020BAX004730

PATIENT
  Age: 49 Year
  Sex: Female

DRUGS (10)
  1. 0.9% SODIUM CHLORIDE INJECTION [Suspect]
     Active Substance: SODIUM CHLORIDE
     Dosage: ETOPOSIDE INJECTION 50 MG + 0.9 % SODIUM CHLORIDE INJECTION, DAY 1 TO DAY 3
     Route: 041
     Dates: start: 20200205, end: 20200207
  2. HOLOXAN [Suspect]
     Active Substance: IFOSFAMIDE
     Indication: DIFFUSE LARGE B-CELL LYMPHOMA
  3. NUO XIN [Suspect]
     Active Substance: CISPLATIN
     Indication: DIFFUSE LARGE B-CELL LYMPHOMA
  4. 0.9% SODIUM CHLORIDE INJECTION [Suspect]
     Active Substance: SODIUM CHLORIDE
     Indication: MEDICATION DILUTION
     Dosage: ETOPOSIDE INJECTION 100 MG + 0.9 % SODIUM CHLORIDE INJECTION, DAY 1 TO DAY 3
     Route: 041
     Dates: start: 20200205, end: 20200207
  5. ETOPOSIDE. [Suspect]
     Active Substance: ETOPOSIDE
     Indication: DIFFUSE LARGE B-CELL LYMPHOMA
     Dosage: ETOPOSIDE INJECTION + 0.9 % SODIUM CHLORIDE INJECTION 250 ML, DAY 1 TO DAY 3
     Route: 041
     Dates: start: 20200205, end: 20200207
  6. NUO XIN [Suspect]
     Active Substance: CISPLATIN
     Indication: CENTRAL NERVOUS SYSTEM LYMPHOMA
     Dosage: NUO XIN INJECTION + 0.9% SODIUM CHLORIDE INJECTION 500 ML, DAY 1 TO DAY 3
     Route: 041
     Dates: start: 20200205, end: 20200207
  7. ETOPOSIDE. [Suspect]
     Active Substance: ETOPOSIDE
     Indication: CENTRAL NERVOUS SYSTEM LYMPHOMA
     Dosage: ETOPOSIDE INJECTION + 0.9 % SODIUM CHLORIDE INJECTION 500 ML, DAY 1 TO DAY 3
     Route: 041
     Dates: start: 20200205, end: 20200207
  8. HOLOXAN [Suspect]
     Active Substance: IFOSFAMIDE
     Indication: CENTRAL NERVOUS SYSTEM LYMPHOMA
     Dosage: HOLOXAN POWDER FOR INJECTION + SODIUM LACTATE RINGER^S INJECTION 500 ML, DAY 1 TO DAY 4
     Route: 041
     Dates: start: 20200205, end: 20200208
  9. LACTATED RINGERS SOLUTION [Suspect]
     Active Substance: CALCIUM CHLORIDE\POTASSIUM CHLORIDE\SODIUM CHLORIDE\SODIUM LACTATE
     Indication: MEDICATION DILUTION
     Dosage: HOLOXAN POWDER FOR INJECTION 2 G + SODIUM LACTATE RINGER^S INJECTION, DAY 1 TO DAY 4
     Route: 041
     Dates: start: 20200205, end: 20200208
  10. 0.9% SODIUM CHLORIDE INJECTION [Suspect]
     Active Substance: SODIUM CHLORIDE
     Dosage: NUO XIN INJECTION 40 MG + 0.9% SODIUM CHLORIDE INJECTION, DAY 1 TO DAY 3
     Route: 041
     Dates: start: 20200205, end: 20200207

REACTIONS (1)
  - Bone marrow failure [Recovering/Resolving]

NARRATIVE: CASE EVENT DATE: 20200214
